FAERS Safety Report 5140479-3 (Version None)
Quarter: 2006Q4

REPORT INFORMATION
  Report Type: 
  Country: None (occurrence: None)
  Receive Date: 20061025
  Receipt Date: 20061025
  Transmission Date: 20070319
  Serious: Yes (Other)
  Sender: FDA-Public Use
  Company Number: None

PATIENT
  Sex: Female
  Weight: 91.6266 kg

DRUGS (1)
  1. FOSAMAX [Suspect]
     Indication: BONE DENSITY DECREASED
     Dosage: ONE BOTTLE   EACH WEEK   PO
     Route: 048
     Dates: start: 20051101, end: 20060215

REACTIONS (3)
  - BONE PAIN [None]
  - DISTURBANCE IN ATTENTION [None]
  - THINKING ABNORMAL [None]
